FAERS Safety Report 8536496-3 (Version None)
Quarter: 2012Q3

REPORT INFORMATION
  Report Type: 
  Country: None (occurrence: None)
  Receive Date: 20120725
  Receipt Date: 20120719
  Transmission Date: 20120928
  Serious: Yes (Hospitalization, Other)
  Sender: FDA-Public Use
  Company Number: PHHY2012AU060260

PATIENT
  Sex: Female

DRUGS (7)
  1. LIPITOR [Concomitant]
     Indication: HYPERCHOLESTEROLAEMIA
     Dosage: 40 MG,
     Route: 048
  2. LERCANIDIPINE [Concomitant]
     Indication: HYPERTENSION
     Dosage: 100 MG,
  3. OSTELIN [Concomitant]
     Indication: VITAMIN D
     Dosage: 20 MG,
  4. ZOLEDRONOC ACID [Suspect]
     Dosage: 5 MG,
     Route: 042
     Dates: start: 20110729
  5. ZOLEDRONOC ACID [Suspect]
     Indication: OSTEOPOROSIS
     Dosage: 5 MG, UNK
     Route: 042
     Dates: start: 20100826
  6. LEVOTHYROXINE SODIUM [Concomitant]
     Indication: HYPOTHYROIDISM
     Dosage: 40 MG,
  7. MICARDIS [Concomitant]
     Indication: HYPERTENSION
     Dosage: 25 MG, UNK

REACTIONS (4)
  - GLOMERULAR FILTRATION RATE DECREASED [None]
  - ARTERIAL OCCLUSIVE DISEASE [None]
  - BLOOD CREATININE INCREASED [None]
  - MUSCLE SPASMS [None]
